APPROVED DRUG PRODUCT: GEREF
Active Ingredient: SERMORELIN ACETATE
Strength: EQ 1MG BASE/VIAL **Federal Register determination that product was not discontinued or withdrawn for safety or effectiveness reasons**
Dosage Form/Route: INJECTABLE;INJECTION
Application: N020443 | Product #002
Applicant: EMD SERONO INC
Approved: Sep 26, 1997 | RLD: Yes | RS: No | Type: DISCN